FAERS Safety Report 16673305 (Version 4)
Quarter: 2020Q3

REPORT INFORMATION
  Report Type: Report from Study
  Country: EG (occurrence: EG)
  Receive Date: 20190806
  Receipt Date: 20200813
  Transmission Date: 20201102
  Serious: Yes (Hospitalization)
  Sender: FDA-Public Use
  Company Number: PHHY2019EG181421

PATIENT
  Age: 58 Year
  Sex: Male

DRUGS (11)
  1. TASIGNA [Suspect]
     Active Substance: NILOTINIB
     Dosage: 800 MG, QD
     Route: 048
  2. CARVID [Concomitant]
     Dosage: 1 DF, BID (25 TABLETS)
     Route: 048
  3. CONCOR [Suspect]
     Active Substance: BISOPROLOL FUMARATE
     Indication: PRODUCT USED FOR UNKNOWN INDICATION
     Dosage: UNK
     Route: 065
     Dates: start: 2002, end: 2016
  4. TASIGNA [Suspect]
     Active Substance: NILOTINIB
     Dosage: 600 MG, PER DAY (2 CAPSULES IN MORNING AND ONE AT EVENING)
     Route: 048
     Dates: start: 201901
  5. PLENDIL [Concomitant]
     Active Substance: FELODIPINE
     Indication: PRODUCT USED FOR UNKNOWN INDICATION
     Dosage: 5 MG, QD (ONCE AT 5 O^CLOCK)
     Route: 065
     Dates: start: 2016
  6. TASIGNA [Suspect]
     Active Substance: NILOTINIB
     Dosage: 400 MG, QD
     Route: 048
     Dates: start: 201911, end: 202002
  7. CARVID [Concomitant]
     Indication: HYPERTENSION
     Dosage: 6.25 OT, BID (IN THE MORNING AND AT THE EVENING) (25 TABLETS)
     Route: 048
     Dates: start: 2002
  8. ALDOMET [Concomitant]
     Active Substance: METHYLDOPA
     Indication: PRODUCT USED FOR UNKNOWN INDICATION
     Dosage: 1 DF, QD (TABLET)
     Route: 048
  9. GLIVEC [Suspect]
     Active Substance: IMATINIB MESYLATE
     Indication: CHRONIC MYELOID LEUKAEMIA
     Dosage: 400 MG, QD
     Route: 048
     Dates: start: 2014, end: 201601
  10. TASIGNA [Suspect]
     Active Substance: NILOTINIB
     Indication: CHRONIC MYELOID LEUKAEMIA
     Dosage: 4 DF, QD
     Route: 048
     Dates: start: 201601
  11. ATACAND [Concomitant]
     Active Substance: CANDESARTAN CILEXETIL
     Indication: HYPERTENSION
     Dosage: 1 DF, QD (16/12.5 PLUS TABLETS) (MORNING)
     Route: 048
     Dates: start: 2002

REACTIONS (8)
  - Vomiting [Recovered/Resolved]
  - Inappropriate schedule of product administration [Unknown]
  - Gastrooesophageal reflux disease [Recovered/Resolved]
  - Coagulopathy [Recovering/Resolving]
  - Capillary disorder [Recovering/Resolving]
  - Peripheral artery occlusion [Recovering/Resolving]
  - Gastric disorder [Recovered/Resolved]
  - Cytogenetic analysis abnormal [Not Recovered/Not Resolved]

NARRATIVE: CASE EVENT DATE: 2014
